FAERS Safety Report 8809868 (Version 23)
Quarter: 2015Q3

REPORT INFORMATION
  Report Type: Report from Study
  Country: CA (occurrence: CA)
  Receive Date: 20120926
  Receipt Date: 20150911
  Transmission Date: 20151125
  Serious: Yes (Other)
  Sender: FDA-Public Use
  Company Number: CA-ROCHE-1131737

PATIENT
  Age: 70 Year
  Sex: Female
  Weight: 109 kg

DRUGS (14)
  1. PAXIL (CANADA) [Concomitant]
  2. PANTOLOC [Concomitant]
     Active Substance: PANTOPRAZOLE SODIUM
     Route: 065
  3. IMOVANE [Concomitant]
     Active Substance: ZOPICLONE
  4. ACTEMRA [Suspect]
     Active Substance: TOCILIZUMAB
     Indication: RHEUMATOID ARTHRITIS
     Route: 042
     Dates: start: 20101111
  5. ACTEMRA [Suspect]
     Active Substance: TOCILIZUMAB
     Route: 042
     Dates: start: 2008
  6. METHOTREXATE [Concomitant]
     Active Substance: METHOTREXATE
     Route: 058
  7. ACTEMRA [Suspect]
     Active Substance: TOCILIZUMAB
     Route: 042
     Dates: start: 20111020
  8. PREDNISONE. [Concomitant]
     Active Substance: PREDNISONE
     Route: 065
  9. CELEBREX [Concomitant]
     Active Substance: CELECOXIB
     Route: 048
  10. CALCIUM D 500 [Concomitant]
     Active Substance: CALCIUM\VITAMIN D
     Route: 048
  11. ACTEMRA [Suspect]
     Active Substance: TOCILIZUMAB
     Route: 042
     Dates: start: 20130919
  12. ACTEMRA [Suspect]
     Active Substance: TOCILIZUMAB
     Route: 042
     Dates: start: 20150108
  13. FOLIC ACID. [Concomitant]
     Active Substance: FOLIC ACID
     Route: 048
  14. NORVASC [Concomitant]
     Active Substance: AMLODIPINE BESYLATE

REACTIONS (16)
  - Weight increased [Unknown]
  - Bronchitis [Unknown]
  - Fall [Unknown]
  - Heart rate decreased [Unknown]
  - Oral herpes [Recovered/Resolved]
  - Oxygen saturation decreased [Unknown]
  - Blood pressure increased [Unknown]
  - Chest discomfort [Unknown]
  - Spinal compression fracture [Recovering/Resolving]
  - Injection site haemorrhage [Unknown]
  - Nasopharyngitis [Unknown]
  - Pain in extremity [Unknown]
  - Herpes zoster [Recovered/Resolved]
  - Weight decreased [Not Recovered/Not Resolved]
  - Arthralgia [Unknown]
  - Oxygen saturation decreased [Unknown]

NARRATIVE: CASE EVENT DATE: 20120831
